FAERS Safety Report 4595998-5 (Version None)
Quarter: 2005Q1

REPORT INFORMATION
  Report Type: 
  Country: None (occurrence: None)
  Receive Date: 20050225
  Receipt Date: 20050215
  Transmission Date: 20050727
  Serious: Yes (Hospitalization)
  Sender: FDA-Public Use
  Company Number: FRWYE425515FEB05

PATIENT
  Age: 28 Year
  Sex: Female

DRUGS (5)
  1. LEVONORGESTREL AND ETHINYL ESTRADIOL [Suspect]
     Indication: CONTRACEPTION
     Dosage: 1 TABLET 1X PER 1 DAY ORAL
     Route: 048
     Dates: start: 20040601, end: 20050101
  2. CHLORPHENIRAMINE MALEATE              (CHLORPHENIAMINE MALEATE) [Suspect]
     Dates: start: 20041129, end: 20040101
  3. EUVANOL             (BENZALKONIUM BROMIDE/CAMPHOR/ESSENTIAL OILS NOS) [Suspect]
     Dates: start: 20041129, end: 20040101
  4. ACETAMINOPHEN [Suspect]
     Dates: start: 20041129, end: 20040101
  5. PSEUDOEPHEDRINE HCL [Suspect]
     Dates: start: 20041129, end: 20040101

REACTIONS (1)
  - CONVULSION [None]
